FAERS Safety Report 6202443-2 (Version None)
Quarter: 2009Q2

REPORT INFORMATION
  Report Type: 
  Country: None (occurrence: None)
  Receive Date: 20090518
  Receipt Date: 20090316
  Transmission Date: 20091009
  Serious: No
  Sender: FDA-Public Use
  Company Number: WAES 0903USA02560

PATIENT
  Age: 50 Year
  Sex: Female
  Weight: 66.6788 kg

DRUGS (2)
  1. JANUVIA [Suspect]
     Indication: HAEMOGLOBIN S INCREASED
     Dosage: 100 MG/ DAILY/ PO
     Route: 048
     Dates: start: 20090102, end: 20090104
  2. JANUVIA [Suspect]
     Indication: HAEMOGLOBIN S INCREASED
     Dosage: 100 MG/ DAILY/ PO
     Route: 048
     Dates: start: 20090101, end: 20090131

REACTIONS (2)
  - ABDOMINAL DISCOMFORT [None]
  - GLYCOSYLATED HAEMOGLOBIN INCREASED [None]
